FAERS Safety Report 8230441-6 (Version None)
Quarter: 2012Q1

REPORT INFORMATION
  Report Type: 
  Country: None (occurrence: None)
  Receive Date: 20120323
  Receipt Date: 20120315
  Transmission Date: 20120608
  Serious: Yes (Hospitalization)
  Sender: FDA-Public Use
  Company Number: US-BAYER-2011-114309

PATIENT
  Age: 26 Year
  Sex: Female

DRUGS (5)
  1. JANUMET [Concomitant]
     Dosage: 50/1000 UNK, BID
     Route: 048
  2. YAZ [Suspect]
     Dosage: UNK
     Dates: start: 20081001
  3. YASMIN [Suspect]
     Dosage: UNK
     Dates: start: 20081001
  4. LISINOPRIL [Concomitant]
     Dosage: 5 MG, QD
     Route: 048
  5. PRAVASTATIN [Concomitant]
     Dosage: 20 MG, HS
     Route: 048

REACTIONS (4)
  - PULMONARY EMBOLISM [None]
  - INJURY [None]
  - DEEP VEIN THROMBOSIS [None]
  - PAIN [None]
